FAERS Safety Report 6771291-7 (Version None)
Quarter: 2010Q2

REPORT INFORMATION
  Report Type: 
  Country: None (occurrence: None)
  Receive Date: 20100616
  Receipt Date: 20100607
  Transmission Date: 20101027
  Serious: Yes (Hospitalization, Other)
  Sender: FDA-Public Use
  Company Number: CA-ASTRAZENECA-2010SE26613

PATIENT
  Age: 82 Year
  Sex: Female
  Weight: 79.4 kg

DRUGS (8)
  1. CRESTOR [Suspect]
     Route: 048
  2. HUMIRA [Suspect]
     Route: 058
  3. METHOTREXATE [Suspect]
  4. ALENDRONATE SODIUM [Concomitant]
     Route: 065
  5. CALCIUM CARBONATE [Concomitant]
     Route: 065
  6. DOCUSATE NOS [Concomitant]
     Route: 065
  7. ERGOCALCIFEROL [Concomitant]
     Route: 065
  8. HYDROXYCHLOROQUINE [Concomitant]
     Route: 065

REACTIONS (8)
  - BILE DUCT STONE [None]
  - CHROMATURIA [None]
  - CONDITION AGGRAVATED [None]
  - HEPATITIS [None]
  - JAUNDICE [None]
  - LIVER DISORDER [None]
  - MALAISE [None]
  - SURGERY [None]
